FAERS Safety Report 4717973-X (Version None)
Quarter: 2005Q3

REPORT INFORMATION
  Report Type: 
  Country: None (occurrence: None)
  Receive Date: 20050718
  Receipt Date: 20050204
  Transmission Date: 20060218
  Serious: No
  Sender: FDA-Public Use
  Company Number: 2005000297

PATIENT
  Age: 81 Year
  Sex: Male

DRUGS (2)
  1. TARCEVA [Suspect]
     Indication: NON-SMALL CELL LUNG CANCER
     Dosage: 150 MG (QD), ORAL
     Route: 048
     Dates: start: 20050128, end: 20050207
  2. WARFARIN SODIUM [Concomitant]

REACTIONS (9)
  - ANOREXIA [None]
  - DIARRHOEA [None]
  - FATIGUE [None]
  - INTERNATIONAL NORMALISED RATIO INCREASED [None]
  - LIP PAIN [None]
  - MOUTH ULCERATION [None]
  - RASH [None]
  - STOMATITIS [None]
  - SWELLING FACE [None]
